FAERS Safety Report 25472881 (Version 1)
Quarter: 2025Q2

REPORT INFORMATION
  Report Type: Spontaneous
  Country: JP (occurrence: JP)
  Receive Date: 20250624
  Receipt Date: 20250624
  Transmission Date: 20250717
  Serious: Yes (Hospitalization, Other)
  Sender: BRISTOL-MYERS SQUIBB COMPANY
  Company Number: JP-BRISTOL-MYERS SQUIBB COMPANY-2025-018414

PATIENT
  Age: 79 Year
  Sex: Male

DRUGS (3)
  1. YERVOY [Suspect]
     Active Substance: IPILIMUMAB
     Indication: Renal cancer
     Route: 042
     Dates: start: 20241210, end: 20241210
  2. OPDIVO [Suspect]
     Active Substance: NIVOLUMAB
     Indication: Renal cancer
     Route: 042
     Dates: start: 20241210, end: 20241210
  3. OPDIVO [Suspect]
     Active Substance: NIVOLUMAB
     Route: 042

REACTIONS (3)
  - Colitis [Recovering/Resolving]
  - Hepatic function abnormal [Recovering/Resolving]
  - Intestinal perforation [Not Recovered/Not Resolved]
